FAERS Safety Report 25456310 (Version 3)
Quarter: 2025Q2

REPORT INFORMATION
  Report Type: Report from Study
  Country: DE (occurrence: DE)
  Receive Date: 20250619
  Receipt Date: 20250627
  Transmission Date: 20250717
  Serious: Yes (Hospitalization)
  Sender: TORRENT PHARMA INC.
  Company Number: None

PATIENT
  Sex: Male

DRUGS (6)
  1. CELECOXIB [Suspect]
     Active Substance: CELECOXIB
     Indication: Psoriatic arthropathy
     Dosage: 200 MG, QD
     Route: 065
     Dates: start: 20200107, end: 20200120
  2. COSENTYX [Suspect]
     Active Substance: SECUKINUMAB
     Indication: Psoriatic arthropathy
     Dosage: 150 MG, QMO (INJECTION)
     Route: 065
     Dates: start: 20180803, end: 20200406
  3. TALTZ [Suspect]
     Active Substance: IXEKIZUMAB
     Indication: Psoriatic arthropathy
     Route: 065
     Dates: start: 20210728, end: 20240731
  4. TREMFYA [Suspect]
     Active Substance: GUSELKUMAB
     Indication: Psoriatic arthropathy
     Route: 065
     Dates: start: 20210512, end: 20210701
  5. ADALIMUMAB [Suspect]
     Active Substance: ADALIMUMAB
     Indication: Psoriatic arthropathy
     Route: 065
     Dates: start: 20201007, end: 20210511
  6. BIMZELX [Suspect]
     Active Substance: BIMEKIZUMAB-BKZX
     Indication: Psoriatic arthropathy
     Route: 065
     Dates: start: 20240731

REACTIONS (3)
  - Cholangitis [Recovered/Resolved]
  - Cholecystitis acute [Recovered/Resolved]
  - Off label use [Unknown]

NARRATIVE: CASE EVENT DATE: 20200107
